FAERS Safety Report 21306102 (Version 1)
Quarter: 2022Q3

REPORT INFORMATION
  Report Type: Spontaneous
  Country: JP (occurrence: JP)
  Receive Date: 20220908
  Receipt Date: 20220908
  Transmission Date: 20221026
  Serious: Yes (Other)
  Sender: FDA-Public Use
  Company Number: JP-CHUGAI-2022029950

PATIENT
  Sex: Male

DRUGS (5)
  1. VABYSMO [Suspect]
     Active Substance: FARICIMAB-SVOA
     Indication: Neovascular age-related macular degeneration
     Dosage: 0.05 MILLIGRAM, ONCE/MONTH
     Route: 065
     Dates: start: 20220609, end: 20220609
  2. VABYSMO [Suspect]
     Active Substance: FARICIMAB-SVOA
     Dosage: 0.05 MILLIGRAM, ONCE/MONTH
     Route: 065
     Dates: start: 20220707, end: 20220707
  3. EYLEA [Concomitant]
     Active Substance: AFLIBERCEPT
     Dosage: UNK, SINGLE
     Route: 065
     Dates: start: 20210215, end: 20210215
  4. EYLEA [Concomitant]
     Active Substance: AFLIBERCEPT
     Dosage: UNK, SINGLE
     Route: 065
     Dates: start: 20211014, end: 20211014
  5. EYLEA [Concomitant]
     Active Substance: AFLIBERCEPT
     Dosage: UNK, SINGLE
     Route: 065
     Dates: start: 20220804, end: 20220804

REACTIONS (1)
  - Retinal haemorrhage [Recovering/Resolving]
